FAERS Safety Report 23128546 (Version 1)
Quarter: 2023Q4

REPORT INFORMATION
  Report Type: Spontaneous
  Country: US (occurrence: US)
  Receive Date: 20231031
  Receipt Date: 20231031
  Transmission Date: 20240109
  Serious: Yes (Other)
  Sender: FDA-Public Use
  Company Number: US-drreddys-SPO/USA/23/0180525

PATIENT
  Age: 17 Year
  Sex: Female

DRUGS (3)
  1. ZENATANE [Suspect]
     Active Substance: ISOTRETINOIN
     Indication: Product used for unknown indication
     Dosage: RMA ISSUE DATE: 15 SEPTEMBER 2023 01:16:55 PM
  2. ZENATANE [Suspect]
     Active Substance: ISOTRETINOIN
     Dosage: RMA ISSUE DATE: 12 SEPTEMBER 2023 07:30:07 PM
  3. ZENATANE [Suspect]
     Active Substance: ISOTRETINOIN
     Dosage: RMA ISSUE DATE: 08 JUNE 2022 01:46:03 PM, 06 JULY 2022 03:44:18 PM, 09 AUGUST 2022 03:10:03 PM, 15 O

REACTIONS (2)
  - Anxiety [Unknown]
  - Depression [Unknown]
